FAERS Safety Report 10230152 (Version 2)
Quarter: 2014Q2

REPORT INFORMATION
  Report Type: Spontaneous
  Country: US (occurrence: US)
  Receive Date: 20140611
  Receipt Date: 20140627
  Transmission Date: 20141212
  Serious: Yes (Hospitalization)
  Sender: FDA-Public Use
  Company Number: US-BAXTER-2014BAX029820

PATIENT
  Sex: Female

DRUGS (6)
  1. DIANEAL LOW CALCIUM [Suspect]
     Indication: PERITONEAL DIALYSIS
     Route: 033
     Dates: start: 20140228
  2. DIANEAL LOW CALCIUM [Suspect]
     Route: 033
     Dates: start: 20140228
  3. DIANEAL LOW CALCIUM [Suspect]
     Indication: PERITONEAL DIALYSIS
     Route: 033
     Dates: start: 20140228
  4. DIANEAL LOW CALCIUM [Suspect]
     Route: 033
     Dates: start: 20140228
  5. DIANEAL LOW CALCIUM [Suspect]
     Indication: PERITONEAL DIALYSIS
     Route: 033
     Dates: start: 20140228
  6. DIANEAL LOW CALCIUM [Suspect]
     Route: 033
     Dates: start: 20140228

REACTIONS (1)
  - Blood count abnormal [Recovered/Resolved]
